FAERS Safety Report 13464992 (Version 1)
Quarter: 2017Q2

REPORT INFORMATION
  Report Type: Spontaneous
  Country: US (occurrence: US)
  Receive Date: 20170420
  Receipt Date: 20170420
  Transmission Date: 20170830
  Serious: Yes (Hospitalization, Other)
  Sender: FDA-Public Use
  Company Number: US-JNJFOC-20170406820

PATIENT
  Age: 81 Year
  Sex: Male

DRUGS (3)
  1. TIKOSYN [Concomitant]
     Active Substance: DOFETILIDE
     Route: 065
  2. XARELTO [Suspect]
     Active Substance: RIVAROXABAN
     Indication: PRODUCT USED FOR UNKNOWN INDICATION
     Route: 048
     Dates: start: 201701
  3. ASPIRIN. [Suspect]
     Active Substance: ASPIRIN
     Indication: PRODUCT USED FOR UNKNOWN INDICATION
     Dosage: WITH MEAL
     Route: 065

REACTIONS (1)
  - Melaena [Unknown]

NARRATIVE: CASE EVENT DATE: 201704
